FAERS Safety Report 10051683 (Version 1)
Quarter: 2014Q2

REPORT INFORMATION
  Report Type: Spontaneous
  Country: US (occurrence: US)
  Receive Date: 20140401
  Receipt Date: 20140401
  Transmission Date: 20141212
  Serious: Yes (Other)
  Sender: FDA-Public Use
  Company Number: US-ABBVIE-14P-163-1219152-00

PATIENT
  Age: 35 Year
  Sex: Female

DRUGS (4)
  1. LUPRON DEPOT [Suspect]
     Indication: ENDOMETRIOSIS
     Dates: start: 20140313
  2. SOVALDI [Concomitant]
     Indication: HEPATITIS C
  3. RIBAVIRIN [Concomitant]
     Indication: HEPATITIS C
  4. PEGASYS [Concomitant]
     Indication: HEPATITIS C

REACTIONS (3)
  - Chest pain [Recovering/Resolving]
  - Peripheral swelling [Recovering/Resolving]
  - Erythema [Recovering/Resolving]
